FAERS Safety Report 6445714-7 (Version None)
Quarter: 2009Q4

REPORT INFORMATION
  Report Type: 
  Country: None (occurrence: None)
  Receive Date: 20091118
  Receipt Date: 20091118
  Transmission Date: 20100525
  Serious: Yes (Disabling)
  Sender: FDA-Public Use
  Company Number: None

PATIENT
  Sex: Female
  Weight: 64.8644 kg

DRUGS (2)
  1. FIORINAL W/CODEINE [Suspect]
     Indication: HEADACHE
     Dosage: APPROX 1 TO 4 WHEN NEEDED MOUTH
     Route: 048
  2. DOLOPHINE HCL [Suspect]
     Indication: PAIN
     Dosage: 10MG 4X DAY 4 DAILY MOUTH
     Route: 048

REACTIONS (5)
  - CAPSULE ISSUE [None]
  - CHEST PAIN [None]
  - FEELING ABNORMAL [None]
  - PRODUCT SUBSTITUTION ISSUE [None]
  - PRODUCT TASTE ABNORMAL [None]
